FAERS Safety Report 21789943 (Version 1)
Quarter: 2022Q4

REPORT INFORMATION
  Report Type: Report from Study
  Country: US (occurrence: US)
  Receive Date: 20221228
  Receipt Date: 20221228
  Transmission Date: 20230113
  Serious: No
  Sender: FDA-Public Use
  Company Number: US-ABBVIE-4251432

PATIENT
  Sex: Male

DRUGS (1)
  1. VENCLEXTA [Suspect]
     Active Substance: VENETOCLAX
     Indication: Chronic lymphocytic leukaemia
     Dosage: TWO 10MG TABS ONE 50MG X7DAYS, TAB X7DAYS, ONE 100MG TAB X7DAYS, THEN TWO 100MG TABS X7DAYS
     Route: 048

REACTIONS (1)
  - Emotional disorder [Unknown]
